FAERS Safety Report 15612168 (Version 3)
Quarter: 2020Q1

REPORT INFORMATION
  Report Type: Not Available
  Country: DE (occurrence: DE)
  Receive Date: 20181113
  Receipt Date: 20200109
  Transmission Date: 20200409
  Serious: Yes (Other)
  Sender: FDA-Public Use
  Company Number: DE-SYNTHON BV-NL01PV18_47632

PATIENT
  Age: 81 Year
  Sex: Male

DRUGS (23)
  1. SIMVASTATIN. [Suspect]
     Active Substance: SIMVASTATIN
     Indication: PRODUCT USED FOR UNKNOWN INDICATION
     Dosage: 40 MG, (40 MG), QD
     Dates: start: 2014
  2. ALLOPURINOL. [Suspect]
     Active Substance: ALLOPURINOL
     Indication: PRODUCT USED FOR UNKNOWN INDICATION
     Dosage: 300 MG, QD
     Dates: start: 2014
  3. LANTUS [Suspect]
     Active Substance: INSULIN GLARGINE
     Dosage: 24 IU, QD
     Dates: start: 2018
  4. NOVAMINSULFON [Suspect]
     Active Substance: METAMIZOLE
     Dosage: UNK/AS NEEDED (2 TO 3 TIMES DAILY 20 TO 30 DROPS
     Dates: start: 2014
  5. TORASEMID [Suspect]
     Active Substance: TORSEMIDE
     Dosage: 40 MG, (20 MG), UNK
     Dates: start: 2012
  6. ASPIRIN. [Suspect]
     Active Substance: ASPIRIN
     Dosage: 100 MG (100), QD
     Dates: start: 2014
  7. ALLOPURINOL. [Suspect]
     Active Substance: ALLOPURINOL
     Dosage: 100 MG, QD
     Dates: start: 2018
  8. LANTUS [Suspect]
     Active Substance: INSULIN GLARGINE
     Dosage: 20 IU, QD
     Dates: start: 2014
  9. PANTOPRAZOL                        /01263201/ [Suspect]
     Active Substance: PANTOPRAZOLE
     Indication: PROPHYLAXIS AGAINST GASTROINTESTINAL ULCER
     Dosage: 40 MG, (40 MG), QD
     Dates: start: 2018
  10. TORASEMID [Suspect]
     Active Substance: TORSEMIDE
     Dosage: 40 MG, (20 MG), QD
     Dates: start: 2014
  11. AMLODIPIN                          /00972401/ [Suspect]
     Active Substance: AMLODIPINE BESYLATE
     Dosage: 5 MG, (5 MG), BID
     Dates: start: 2014
  12. NOVORAPID [Suspect]
     Active Substance: INSULIN ASPART
     Dosage: UNK
     Dates: start: 2018
  13. VALSACOR [Suspect]
     Active Substance: VALSARTAN
     Dosage: UNK
     Dates: start: 20180903, end: 20181009
  14. NOVORAPID [Suspect]
     Active Substance: INSULIN ASPART
     Dosage: UNK
     Dates: start: 2014
  15. NOVORAPID [Suspect]
     Active Substance: INSULIN ASPART
     Dosage: UNK/24 IN THE MORNING, 18 AT NOON AND 20 IN THE EVENING
  16. TAMSULOSIN [Suspect]
     Active Substance: TAMSULOSIN
     Indication: PRODUCT USED FOR UNKNOWN INDICATION
     Dosage: 0.4 MG, QD
     Dates: start: 2014
  17. NOVORAPID [Suspect]
     Active Substance: INSULIN ASPART
     Indication: PRODUCT USED FOR UNKNOWN INDICATION
     Dosage: UNK/24 IN THE MORNING, 18 AT NOON AND 20 IN THE EVENING
     Dates: start: 2012
  18. VALSACOR [Suspect]
     Active Substance: VALSARTAN
     Indication: PRODUCT USED FOR UNKNOWN INDICATION
     Dosage: 160 MG, QD
     Dates: start: 2014
  19. CANDESARTAN. [Suspect]
     Active Substance: CANDESARTAN
     Dosage: 16 MILLIGRAM, QD
     Dates: start: 20181009
  20. METAMIZOLE SODIUM [Suspect]
     Active Substance: METAMIZOLE SODIUM
     Indication: PRODUCT USED FOR UNKNOWN INDICATION
     Dosage: UNK
     Dates: start: 2014
  21. AMLODIPIN                          /00972401/ [Suspect]
     Active Substance: AMLODIPINE BESYLATE
     Dosage: 5 MG, (5 MG), QD
     Dates: start: 2018
  22. VALSARTAN HEXAL [Suspect]
     Active Substance: VALSARTAN
     Indication: PRODUCT USED FOR UNKNOWN INDICATION
     Dosage: 160 MILLIGRAM, QD
     Dates: start: 2014
  23. CALCITRIOL. [Concomitant]
     Active Substance: CALCITRIOL
     Indication: PRODUCT USED FOR UNKNOWN INDICATION
     Dosage: 0.25 MG, QD
     Dates: start: 2014

REACTIONS (13)
  - Skin haemorrhage [Unknown]
  - Peripheral swelling [Unknown]
  - Dyspnoea exertional [Unknown]
  - Rectal tenesmus [Unknown]
  - Blood glucose increased [Unknown]
  - Chest discomfort [Unknown]
  - Dyspnoea [Unknown]
  - Pelvic pain [Unknown]
  - Muscle spasms [Unknown]
  - Myalgia [Unknown]
  - Spinal pain [Unknown]
  - Asthenia [Unknown]
  - Nausea [Unknown]

NARRATIVE: CASE EVENT DATE: 201809
